FAERS Safety Report 13787954 (Version 1)
Quarter: 2017Q3

REPORT INFORMATION
  Report Type: Spontaneous
  Country: IN (occurrence: IN)
  Receive Date: 20170725
  Receipt Date: 20170725
  Transmission Date: 20171127
  Serious: No
  Sender: FDA-Public Use
  Company Number: IN-LUPIN PHARMACEUTICALS INC.-E2B_00006071

PATIENT
  Age: 45 Year
  Sex: Male

DRUGS (2)
  1. RABLET D [Concomitant]
     Indication: FLATULENCE
     Dosage: 1 DF,QD,
     Route: 048
     Dates: start: 20160711
  2. PEGALUP ORAL SOLUT. 200 ML [Suspect]
     Active Substance: POLYETHYLENE GLYCOL 3350\POTASSIUM CHLORIDE\SODIUM BICARBONATE\SODIUM CHLORIDE
     Dosage: 25 ML DILUTED IN 100 ML WATER
     Route: 048
     Dates: start: 20160711

REACTIONS (2)
  - Product taste abnormal [Unknown]
  - Drug ineffective [Unknown]
